FAERS Safety Report 15463377 (Version 1)
Quarter: 2018Q4

REPORT INFORMATION
  Report Type: Report from Study
  Country: CA (occurrence: CA)
  Receive Date: 20181004
  Receipt Date: 20181004
  Transmission Date: 20190204
  Serious: No
  Sender: FDA-Public Use
  Company Number: CA-IPSEN BIOPHARMACEUTICALS, INC.-2017-12322

PATIENT
  Age: 79 Year
  Sex: Female

DRUGS (2)
  1. SOMATULINE AUTOGEL 120MG [Suspect]
     Active Substance: LANREOTIDE ACETATE
     Dosage: 90MG
     Route: 058
     Dates: start: 2017
  2. SOMATULINE AUTOGEL 120MG [Suspect]
     Active Substance: LANREOTIDE ACETATE
     Indication: NEUROENDOCRINE TUMOUR
     Dosage: 120MG
     Route: 058
     Dates: start: 20170921, end: 2017

REACTIONS (5)
  - Anal incontinence [Unknown]
  - Quality of life decreased [Unknown]
  - Diarrhoea [Not Recovered/Not Resolved]
  - Flatulence [Unknown]
  - Blood potassium decreased [Unknown]

NARRATIVE: CASE EVENT DATE: 2017
